FAERS Safety Report 17359913 (Version 5)
Quarter: 2020Q4

REPORT INFORMATION
  Report Type: Report from Study
  Country: US (occurrence: US)
  Receive Date: 20200203
  Receipt Date: 20201013
  Transmission Date: 20210113
  Serious: Yes (Hospitalization, Other)
  Sender: FDA-Public Use
  Company Number: US-ROCHE-2537544

PATIENT
  Age: 73 Year
  Sex: Male
  Weight: 81.9 kg

DRUGS (4)
  1. PIRFENIDONE. [Suspect]
     Active Substance: PIRFENIDONE
     Indication: NON-SMALL CELL LUNG CANCER
     Dosage: FULL CYCLES OF PRIFENIDONE LAST KNOWN DOSE ON 02/APR/2020?8 FULL CYCLES OF PRIFENIDONE LAST KNOWN DO
     Route: 048
  2. CARBOPLATIN. [Suspect]
     Active Substance: CARBOPLATIN
     Indication: NON-SMALL CELL LUNG CANCER
     Dosage: AUC 6?4 DOSES OF CARBOPLATIN LAST DOSE ON 17/JAN/2020
     Route: 042
     Dates: start: 20181111, end: 20200117
  3. XARELTO [Suspect]
     Active Substance: RIVAROXABAN
     Indication: NON-SMALL CELL LUNG CANCER
     Route: 048
  4. PEMETREXED. [Suspect]
     Active Substance: PEMETREXED
     Indication: NON-SMALL CELL LUNG CANCER
     Dosage: DOSES OF PEMETREXED LAST DOSE ON 17/JAN/2020?6 DOSES OF PEMETREXED LAST DOSE ON 11/MAR/2020
     Route: 042
     Dates: start: 20181111, end: 20200117

REACTIONS (16)
  - Odynophagia [Unknown]
  - Dehydration [Unknown]
  - Confusional state [Not Recovered/Not Resolved]
  - Odynophagia [Not Recovered/Not Resolved]
  - Haematuria [Not Recovered/Not Resolved]
  - Thrombocytopenia [Recovered/Resolved]
  - Encephalopathy [Unknown]
  - Acute kidney injury [Not Recovered/Not Resolved]
  - Decreased appetite [Unknown]
  - Platelet count decreased [Unknown]
  - Acute kidney injury [Unknown]
  - Anaemia [Recovered/Resolved]
  - Chronic kidney disease [Not Recovered/Not Resolved]
  - Dehydration [Not Recovered/Not Resolved]
  - Neutropenia [Recovered/Resolved]
  - Anaemia [Unknown]

NARRATIVE: CASE EVENT DATE: 20200106
